FAERS Safety Report 5108005-2 (Version None)
Quarter: 2006Q3

REPORT INFORMATION
  Report Type: 
  Country: None (occurrence: None)
  Receive Date: 20060914
  Receipt Date: 20060904
  Transmission Date: 20061208
  Serious: Yes (Death)
  Sender: FDA-Public Use
  Company Number: 2006-DE-04655GD

PATIENT

DRUGS (1)
  1. MORPHINE [Suspect]
     Indication: ABDOMINAL PAIN
     Dosage: 0.1 MG/KG UP TO A MAXIMUM OF 10 MG, IV
     Route: 042

REACTIONS (2)
  - INTESTINAL INFARCTION [None]
  - INTESTINAL ISCHAEMIA [None]
